FAERS Safety Report 24689550 (Version 1)
Quarter: 2024Q4

REPORT INFORMATION
  Report Type: Spontaneous
  Country: US (occurrence: US)
  Receive Date: 20241203
  Receipt Date: 20241203
  Transmission Date: 20250115
  Serious: No
  Sender: ROCHE
  Company Number: US-ROCHE-10000141504

PATIENT

DRUGS (1)
  1. HERCEPTIN HYLECTA [Suspect]
     Active Substance: HYALURONIDASE-OYSK\TRASTUZUMAB
     Indication: Breast cancer
     Dosage: FLAT DOSE
     Route: 058

REACTIONS (3)
  - Feeling hot [Recovered/Resolved]
  - Syncope [Recovered/Resolved]
  - Incoherent [Recovered/Resolved]
